FAERS Safety Report 4643639-0 (Version None)
Quarter: 2005Q2

REPORT INFORMATION
  Report Type: 
  Country: None (occurrence: None)
  Receive Date: 20050425
  Receipt Date: 20050419
  Transmission Date: 20051028
  Serious: Yes (Other)
  Sender: FDA-Public Use
  Company Number: DE-SOLVAY-00305001310

PATIENT
  Age: 8 Week
  Sex: Female

DRUGS (1)
  1. FEVARIN [Suspect]
     Indication: ILL-DEFINED DISORDER
     Dosage: DAILY DOSE: 50 MILLIGRAM(S)
     Route: 048
     Dates: start: 20050202, end: 20050223

REACTIONS (1)
  - OPISTHOTONUS [None]
